FAERS Safety Report 7372865-5 (Version None)
Quarter: 2011Q1

REPORT INFORMATION
  Report Type: 
  Country: None (occurrence: None)
  Receive Date: 20110314
  Receipt Date: 20101104
  Transmission Date: 20110831
  Serious: Yes (Other)
  Sender: FDA-Public Use
  Company Number: ACO_20206_2010

PATIENT
  Age: 77 Year
  Sex: Female

DRUGS (2)
  1. TYSABRI [Concomitant]
  2. AMPYRA [Suspect]
     Indication: PRODUCT USED FOR UNKNOWN INDICATION
     Dosage: ORAL
     Route: 048
     Dates: start: 20100701

REACTIONS (4)
  - PARAESTHESIA [None]
  - GAIT DISTURBANCE [None]
  - CATARACT [None]
  - FATIGUE [None]
